FAERS Safety Report 11687536 (Version 1)
Quarter: 2015Q4

REPORT INFORMATION
  Report Type: Spontaneous
  Country: US (occurrence: US)
  Receive Date: 20151030
  Receipt Date: 20151030
  Transmission Date: 20160304
  Serious: No
  Sender: FDA-Public Use
  Company Number: US-BAYER-2015-449630

PATIENT
  Age: 70 Year
  Sex: Female
  Weight: 58.95 kg

DRUGS (1)
  1. ALEVE [Suspect]
     Active Substance: NAPROXEN SODIUM
     Indication: ARTHRALGIA
     Dosage: 1 DF, QD
     Route: 048
     Dates: start: 20151016, end: 20151018

REACTIONS (11)
  - Gastrointestinal disorder [Recovered/Resolved]
  - Oral mucosal erythema [Recovered/Resolved]
  - Depression [Recovered/Resolved]
  - Lethargy [Recovered/Resolved]
  - Vision blurred [Not Recovered/Not Resolved]
  - Oral pain [None]
  - Chills [Recovered/Resolved]
  - Flatulence [Recovered/Resolved]
  - Lip blister [Recovered/Resolved]
  - Diarrhoea [Recovered/Resolved]
  - Oral pain [Recovered/Resolved]

NARRATIVE: CASE EVENT DATE: 20151016
